FAERS Safety Report 16056652 (Version 1)
Quarter: 2019Q1

REPORT INFORMATION
  Report Type: Spontaneous
  Country: US (occurrence: US)
  Receive Date: 20190311
  Receipt Date: 20190311
  Transmission Date: 20190418
  Serious: Yes (Other)
  Sender: FDA-Public Use
  Company Number: US-PFIZER INC-2019100289

PATIENT
  Age: 56 Year
  Sex: Female
  Weight: 99.34 kg

DRUGS (1)
  1. LYRICA [Suspect]
     Active Substance: PREGABALIN
     Indication: NEUROPATHY PERIPHERAL
     Dosage: 300 MG, 2X/DAY
     Route: 048

REACTIONS (7)
  - Hyperthyroidism [Unknown]
  - Diarrhoea [Unknown]
  - Hypersomnia [Unknown]
  - Abdominal pain upper [Unknown]
  - Body height decreased [Unknown]
  - Depression [Unknown]
  - Weight decreased [Not Recovered/Not Resolved]

NARRATIVE: CASE EVENT DATE: 2017
